FAERS Safety Report 10159240 (Version 2)
Quarter: 2014Q4

REPORT INFORMATION
  Report Type: Spontaneous
  Country: FR (occurrence: FR)
  Receive Date: 20140508
  Receipt Date: 20141215
  Transmission Date: 20150528
  Serious: Yes (Other)
  Sender: FDA-Public Use
  Company Number: FR-JNJFOC-20140421065

PATIENT
  Sex: Female

DRUGS (3)
  1. ORTHO EVRA [Suspect]
     Active Substance: ETHINYL ESTRADIOL\NORELGESTROMIN
     Indication: PRODUCT USED FOR UNKNOWN INDICATION
     Route: 062
     Dates: start: 20140129, end: 201404
  2. CIFLOXAN [Concomitant]
     Indication: CYSTITIS
     Route: 048
     Dates: start: 20140321
  3. SOLUPRED [Concomitant]
     Active Substance: PREDNISOLONE
     Route: 065
     Dates: start: 20140321

REACTIONS (3)
  - Pulmonary embolism [Recovering/Resolving]
  - Pulmonary infarction [Unknown]
  - Phlebitis [Unknown]
